FAERS Safety Report 7806621-8 (Version None)
Quarter: 2011Q4

REPORT INFORMATION
  Report Type: 
  Country: None (occurrence: None)
  Receive Date: 20111007
  Receipt Date: 20111007
  Transmission Date: 20120403
  Serious: No
  Sender: FDA-Public Use
  Company Number: None

PATIENT
  Sex: Male

DRUGS (1)
  1. ENBREL [Suspect]
     Indication: RHEUMATOID ARTHRITIS
     Dosage: 50MG QW SW
     Route: 058
     Dates: start: 20110903

REACTIONS (3)
  - ALANINE AMINOTRANSFERASE INCREASED [None]
  - HEART RATE INCREASED [None]
  - ABDOMINAL PAIN [None]
